FAERS Safety Report 12434239 (Version 1)
Quarter: 2016Q2

REPORT INFORMATION
  Report Type: Report from Study
  Country: BR (occurrence: BR)
  Receive Date: 20160603
  Receipt Date: 20160603
  Transmission Date: 20160815
  Serious: Yes (Death, Other)
  Sender: FDA-Public Use
  Company Number: PHHY2016BR076352

PATIENT
  Sex: Female
  Weight: 47 kg

DRUGS (3)
  1. EXJADE [Suspect]
     Active Substance: DEFERASIROX
     Indication: HAEMOGLOBIN DECREASED
  2. EXJADE [Suspect]
     Active Substance: DEFERASIROX
     Indication: IRON OVERLOAD
     Dosage: UNK UKN, UNK
     Route: 065
     Dates: start: 201601
  3. EXJADE [Suspect]
     Active Substance: DEFERASIROX
     Indication: PLATELET COUNT DECREASED

REACTIONS (8)
  - Hypophagia [Unknown]
  - Death [Fatal]
  - Pneumonia [Unknown]
  - Blast cell proliferation [Unknown]
  - Malaise [Unknown]
  - Immunodeficiency [Unknown]
  - Leukaemia [Unknown]
  - Product use issue [Unknown]
